FAERS Safety Report 24134164 (Version 2)
Quarter: 2024Q4

REPORT INFORMATION
  Report Type: Spontaneous
  Country: MA (occurrence: None)
  Receive Date: 20240724
  Receipt Date: 20241001
  Transmission Date: 20250115
  Serious: Yes (Death, Hospitalization, Other)
  Sender: UNICHEM
  Company Number: MA-Unichem Pharmaceuticals (USA) Inc-UCM202407-000892

PATIENT
  Age: 63 Year
  Sex: Female

DRUGS (3)
  1. METFORMIN HYDROCHLORIDE [Suspect]
     Active Substance: METFORMIN HYDROCHLORIDE
     Indication: Type 2 diabetes mellitus
     Dosage: UNKNOWN
  2. METFORMIN HYDROCHLORIDE [Suspect]
     Active Substance: METFORMIN HYDROCHLORIDE
  3. SINTROM [Concomitant]
     Active Substance: ACENOCOUMAROL
     Indication: Arterial thrombosis
     Dosage: UNKNOWN

REACTIONS (10)
  - Renal failure [Fatal]
  - Paraparesis [Recovered/Resolved]
  - Muscular weakness [Recovering/Resolving]
  - Central nervous system lesion [Recovered/Resolved]
  - Limb discomfort [Unknown]
  - Dysarthria [Unknown]
  - Anaemia [Unknown]
  - Hyponatraemia [Unknown]
  - Hypokalaemia [Unknown]
  - Hyperammonaemia [Unknown]
